FAERS Safety Report 8605273-7 (Version None)
Quarter: 2012Q3

REPORT INFORMATION
  Report Type: 
  Country: None (occurrence: None)
  Receive Date: 20120820
  Receipt Date: 20120809
  Transmission Date: 20120928
  Serious: Yes (Other)
  Sender: FDA-Public Use
  Company Number: US-ASTRAZENECA-2012SE56704

PATIENT
  Age: 48 Year
  Sex: Female

DRUGS (1)
  1. PULMICORT FLEXHALER [Suspect]
     Indication: ASTHMA
     Route: 055

REACTIONS (3)
  - MATERNAL EXPOSURE DURING PREGNANCY [None]
  - SARCOIDOSIS [None]
  - PRE-ECLAMPSIA [None]
